FAERS Safety Report 5369840-9 (Version None)
Quarter: 2007Q2

REPORT INFORMATION
  Report Type: 
  Country: None (occurrence: None)
  Receive Date: 20070531
  Receipt Date: 20070515
  Transmission Date: 20071010
  Serious: Yes (Hospitalization)
  Sender: FDA-Public Use
  Company Number: AECAN200700119

PATIENT
  Age: 35 Year
  Sex: Female
  Weight: 124.7392 kg

DRUGS (10)
  1. GAMUNEX [Suspect]
     Indication: IDIOPATHIC THROMBOCYTOPENIC PURPURA
     Dosage: 120 GM; 1X; IV
     Route: 042
     Dates: start: 20070503, end: 20070503
  2. AMITRIPTYLINE HCL [Concomitant]
  3. ATENOLOL [Concomitant]
  4. OXYCODONE HCL [Concomitant]
  5. CITALOPRAM HYDROBROMIDE [Concomitant]
  6. CYCLOBENZAPRINE HCL [Concomitant]
  7. INDAPAMIDE [Concomitant]
  8. CLONIDINE [Concomitant]
  9. METOCLOPRAMIDE [Concomitant]
  10. OXAZEPAM [Concomitant]

REACTIONS (6)
  - HEADACHE [None]
  - MENINGITIS ASEPTIC [None]
  - NAUSEA [None]
  - REBOUND EFFECT [None]
  - VOMITING [None]
  - VOMITING PROJECTILE [None]
